FAERS Safety Report 23617332 (Version 1)
Quarter: 2024Q1

REPORT INFORMATION
  Report Type: Spontaneous
  Country: US (occurrence: None)
  Receive Date: 20240309
  Receipt Date: 20240309
  Transmission Date: 20240410
  Serious: Yes (Other)
  Sender: FDA-Public Use
  Company Number: None

PATIENT
  Age: 60 Year
  Sex: Female
  Weight: 52.65 kg

DRUGS (26)
  1. MONTELUKAST SODIUM [Suspect]
     Active Substance: MONTELUKAST SODIUM
     Indication: Asthma
     Dosage: OTHER QUANTITY : 90 TABLET(S);?FREQUENCY : AT BEDTIME;?
     Route: 048
     Dates: start: 20000301, end: 20240301
  2. ALENDRONATE SODIUM [Concomitant]
     Active Substance: ALENDRONATE SODIUM
  3. BACLOFEN [Concomitant]
     Active Substance: BACLOFEN
  4. BIMATOPROST [Concomitant]
     Active Substance: BIMATOPROST
  5. ENBREL [Concomitant]
     Active Substance: ETANERCEPT
  6. ESTRADIOL [Concomitant]
     Active Substance: ESTRADIOL
  7. Levothyroxine (Tirosint brand) [Concomitant]
  8. NEBIVOLOL [Concomitant]
     Active Substance: NEBIVOLOL
  9. Pancreaze (brand) EC [Concomitant]
  10. PYRIDOSTIGMINE [Concomitant]
     Active Substance: PYRIDOSTIGMINE
  11. RABEPRAZOLE SODIUM [Concomitant]
     Active Substance: RABEPRAZOLE SODIUM
  12. TIOTROPIUM BROMIDE [Concomitant]
     Active Substance: TIOTROPIUM BROMIDE
  13. VITAMIN D3 [Concomitant]
     Active Substance: CHOLECALCIFEROL
  14. LEVALBUTEROL TARTRATE HFA [Concomitant]
  15. Lidocaine patches 1.8% [Concomitant]
  16. ONDANSETRON [Concomitant]
     Active Substance: ONDANSETRON
  17. Oxytocin NS [Concomitant]
  18. RIZATRIPTAN [Concomitant]
     Active Substance: RIZATRIPTAN
  19. ACETAMINOPHEN [Concomitant]
     Active Substance: ACETAMINOPHEN
  20. CALCIUM CARBONATE [Concomitant]
     Active Substance: CALCIUM CARBONATE
  21. Collagen peptide powder [Concomitant]
  22. Cyclosporine ophthalmic drops [Concomitant]
  23. Melatonin SL [Concomitant]
  24. Tretinoin Cream 0.050% [Concomitant]
  25. Vitamin B12 SL [Concomitant]
  26. VITAMIN C [Concomitant]
     Active Substance: ASCORBIC ACID

REACTIONS (6)
  - Dystonia [None]
  - Muscle tightness [None]
  - Pain [None]
  - Therapy cessation [None]
  - Sleep disorder [None]
  - Loss of personal independence in daily activities [None]

NARRATIVE: CASE EVENT DATE: 20230301
